FAERS Safety Report 8575438-1 (Version None)
Quarter: 2012Q3

REPORT INFORMATION
  Report Type: 
  Country: None (occurrence: None)
  Receive Date: 20120807
  Receipt Date: 20120801
  Transmission Date: 20120928
  Serious: Yes (Other)
  Sender: FDA-Public Use
  Company Number: JP-ROXANE LABORATORIES, INC.-2012-RO-01626RO

PATIENT
  Age: 72 Year
  Sex: Male

DRUGS (4)
  1. AZATHIOPRINE SODIUM [Suspect]
     Indication: INTERSTITIAL LUNG DISEASE
     Dosage: 100 MG
  2. PREDNISOLONE [Suspect]
     Indication: RHEUMATOID ARTHRITIS
     Dosage: 20 MG
  3. AZATHIOPRINE SODIUM [Suspect]
     Indication: RHEUMATOID ARTHRITIS
     Dosage: 50 MG
  4. PREDNISOLONE [Suspect]
     Indication: INTERSTITIAL LUNG DISEASE

REACTIONS (1)
  - PULMONARY TOXICITY [None]
